FAERS Safety Report 19784090 (Version 1)
Quarter: 2021Q3

REPORT INFORMATION
  Report Type: Spontaneous
  Country: FR (occurrence: FR)
  Receive Date: 20210903
  Receipt Date: 20210903
  Transmission Date: 20211014
  Serious: Yes (Other)
  Sender: FDA-Public Use
  Company Number: NVSC2021FR197040

PATIENT
  Age: 75 Year
  Sex: Male

DRUGS (1)
  1. VALSARTAN SANDOZ [Suspect]
     Active Substance: VALSARTAN
     Indication: HYPERTENSION
     Dosage: 160 MG
     Route: 065
     Dates: end: 202008

REACTIONS (4)
  - Laryngeal oedema [Unknown]
  - Respiratory disorder [Unknown]
  - Swelling face [Unknown]
  - Angioedema [Unknown]
